FAERS Safety Report 4382388-3 (Version None)
Quarter: 2004Q2

REPORT INFORMATION
  Report Type: 
  Country: None (occurrence: None)
  Receive Date: 20040622
  Receipt Date: 20040615
  Transmission Date: 20050107
  Serious: Yes (Other)
  Sender: FDA-Public Use
  Company Number: US-BRISTOL-MYERS SQUIBB COMPANY-12615308

PATIENT
  Age: 72 Year
  Sex: Male

DRUGS (1)
  1. METFORMIN HCL [Suspect]

REACTIONS (6)
  - ASTHENIA [None]
  - BLOOD UREA INCREASED [None]
  - COAGULOPATHY [None]
  - HEPATIC FAILURE [None]
  - LOCALISED INFECTION [None]
  - RENAL FAILURE [None]
